FAERS Safety Report 4830550-5 (Version None)
Quarter: 2005Q4

REPORT INFORMATION
  Report Type: 
  Country: None (occurrence: None)
  Receive Date: 20051115
  Receipt Date: 20051005
  Transmission Date: 20060501
  Serious: Yes (Hospitalization)
  Sender: FDA-Public Use
  Company Number: DSA_27230_2005

PATIENT
  Age: 29 Year
  Sex: Male

DRUGS (4)
  1. TAVOR [Suspect]
     Dosage: 125 MG ONCE
     Dates: start: 20051004, end: 20051004
  2. PHENCYCLIDINE [Suspect]
     Dosage: DF ONCE
     Dates: start: 20051004, end: 20051004
  3. SUBUTEX [Suspect]
     Dosage: DF ONCE
     Dates: start: 20051004
  4. ALCOHOL [Suspect]
     Dosage: DF ONCE
     Dates: start: 20051004

REACTIONS (5)
  - ALCOHOL USE [None]
  - COMA [None]
  - MULTIPLE DRUG OVERDOSE INTENTIONAL [None]
  - SOPOR [None]
  - TACHYCARDIA [None]
